FAERS Safety Report 6185778-1 (Version None)
Quarter: 2009Q2

REPORT INFORMATION
  Report Type: 
  Country: None (occurrence: None)
  Receive Date: 20090507
  Receipt Date: 20090423
  Transmission Date: 20091009
  Serious: Yes (Hospitalization)
  Sender: FDA-Public Use
  Company Number: INT_00012_2009

PATIENT
  Age: 84 Year
  Sex: Male

DRUGS (6)
  1. CEFTRIAXONE [Suspect]
     Indication: PNEUMONIA
     Dosage: 2 G Q4H INTRAVENOUS (NOT OTHERWISE SPECIFIED) ), (DF)
     Route: 042
  2. CEFTRIAXONE [Suspect]
     Indication: SEPSIS
     Dosage: 2 G Q4H INTRAVENOUS (NOT OTHERWISE SPECIFIED) ), (DF)
     Route: 042
  3. DECADRON [Concomitant]
  4. RANITIDINE [Concomitant]
  5. DIPHENHYDRAINE [Concomitant]
  6. HYDROCORTISONE [Concomitant]

REACTIONS (15)
  - ATRIAL FIBRILLATION [None]
  - BODY TEMPERATURE INCREASED [None]
  - DRUG HYPERSENSITIVITY [None]
  - HAEMODYNAMIC INSTABILITY [None]
  - HYPOTENSION [None]
  - KLEBSIELLA INFECTION [None]
  - LUNG INFILTRATION [None]
  - RASH ERYTHEMATOUS [None]
  - RASH PRURITIC [None]
  - SPUTUM CULTURE POSITIVE [None]
  - STAPHYLOCOCCAL INFECTION [None]
  - TACHYCARDIA [None]
  - TOXIC EPIDERMAL NECROLYSIS [None]
  - URTICARIA [None]
  - WRONG DRUG ADMINISTERED [None]
